FAERS Safety Report 8363859-1 (Version None)
Quarter: 2012Q2

REPORT INFORMATION
  Report Type: 
  Country: None (occurrence: None)
  Receive Date: 20120516
  Receipt Date: 20120106
  Transmission Date: 20120825
  Serious: No
  Sender: FDA-Public Use
  Company Number: US-ALEXION-A201200039

PATIENT

DRUGS (3)
  1. MEPRON [Concomitant]
     Indication: BONE MARROW TRANSPLANT
  2. SOLIRIS [Suspect]
     Indication: PAROXYSMAL NOCTURNAL HAEMOGLOBINURIA
     Dosage: UNK
     Route: 042
  3. PENTAMIDINE [Concomitant]
     Indication: BONE MARROW TRANSPLANT
     Dosage: UNK

REACTIONS (2)
  - MUSCLE RIGIDITY [None]
  - MEDIAL TIBIAL STRESS SYNDROME [None]
